FAERS Safety Report 8518094-0 (Version None)
Quarter: 2012Q3

REPORT INFORMATION
  Report Type: 
  Country: None (occurrence: None)
  Receive Date: 20120718
  Receipt Date: 20110922
  Transmission Date: 20120928
  Serious: No
  Sender: FDA-Public Use
  Company Number: US-BRISTOL-MYERS SQUIBB COMPANY-16085631

PATIENT
  Age: 80 Year
  Sex: Female

DRUGS (9)
  1. PREDNISONE [Concomitant]
  2. RAMIPRIL [Concomitant]
  3. CRESTOR [Concomitant]
  4. CALCIUM CARBONATE [Concomitant]
  5. POTASSIUM CHLORIDE [Concomitant]
  6. AMIODARONE HCL [Concomitant]
  7. AGGRENOX [Concomitant]
  8. COUMADIN [Suspect]
  9. LASIX [Concomitant]

REACTIONS (1)
  - INTERNATIONAL NORMALISED RATIO DECREASED [None]
